FAERS Safety Report 7334969-2 (Version None)
Quarter: 2011Q1

REPORT INFORMATION
  Report Type: 
  Country: None (occurrence: None)
  Receive Date: 20110307
  Receipt Date: 20110225
  Transmission Date: 20110831
  Serious: Yes (Hospitalization, Other)
  Sender: FDA-Public Use
  Company Number: BR-ROCHE-762512

PATIENT
  Sex: Female

DRUGS (2)
  1. ACTEMRA [Suspect]
     Route: 065
     Dates: start: 20091008, end: 20091008
  2. ACTEMRA [Suspect]
     Route: 065
     Dates: start: 20091109

REACTIONS (14)
  - VOMITING [None]
  - HALLUCINATION [None]
  - GINGIVITIS [None]
  - DIARRHOEA [None]
  - APHAGIA [None]
  - HAEMATOCHEZIA [None]
  - PANCYTOPENIA [None]
  - GASTROINTESTINAL DISORDER [None]
  - RASH [None]
  - ASTHENIA [None]
  - LOSS OF CONSCIOUSNESS [None]
  - WOUND [None]
  - PYREXIA [None]
  - ARTHRALGIA [None]
